FAERS Safety Report 4308753-8 (Version None)
Quarter: 2004Q1

REPORT INFORMATION
  Report Type: 
  Country: None (occurrence: None)
  Receive Date: 20040227
  Receipt Date: 20040219
  Transmission Date: 20041129
  Serious: Yes (Other)
  Sender: FDA-Public Use
  Company Number: HQ5173511NOV2002

PATIENT
  Age: 30 Year
  Sex: Female

DRUGS (8)
  1. DIMETAPP [Suspect]
     Indication: NASOPHARYNGITIS
     Dosage: ^TWO DOSES PER DAY^, ORAL
     Route: 048
     Dates: start: 19970126, end: 19970131
  2. ALKA-SELTZER PLUS (ACETYLSALICYLIC ACID/CHLORPHENAMINE MALEATE/PHENYLP [Suspect]
  3. BROMTAPP (BROMPHENIRAMINE MALEATE /PHENYLEPHRINE HYDROCHLORIDE / PPA, [Suspect]
  4. CORICIDIN [Suspect]
  5. DEXATRIM (CAFFEINE/PHENYLPROPANOLAMINE HYDROCHLORIDE, ) [Suspect]
  6. DIMETAPP [Suspect]
     Indication: NASOPHARYNGITIS
     Dosage: ^TWO DOSES PER DAY^, ORAL
     Route: 048
     Dates: start: 19970126, end: 19970131
  7. TAVIST D [Suspect]
  8. TRIAMINIC-12 [Suspect]

REACTIONS (1)
  - ISCHAEMIC STROKE [None]
